FAERS Safety Report 9712132 (Version 1)
Quarter: 2013Q4

REPORT INFORMATION
  Report Type: Spontaneous
  Country: JP (occurrence: JP)
  Receive Date: 20131126
  Receipt Date: 20131126
  Transmission Date: 20140711
  Serious: Yes (Hospitalization)
  Sender: FDA-Public Use
  Company Number: JP-B.I. PHARMACEUTICALS,INC./RIDGEFIELD-2013-BI-38624GD

PATIENT
  Age: 83 Year
  Sex: Female

DRUGS (3)
  1. PRADAXA [Suspect]
     Indication: ANTICOAGULANT THERAPY
     Dosage: 150 MG
     Route: 048
  2. CYCLOSPORINE [Concomitant]
  3. ANTIHYPERTENSIVE DRUGS [Concomitant]
     Indication: HYPERTENSION

REACTIONS (6)
  - Subdural haematoma [Recovered/Resolved]
  - Brain compression [Recovered/Resolved]
  - Hydrocephalus [Recovered/Resolved]
  - Headache [Recovered/Resolved]
  - Cerebellar syndrome [Recovered/Resolved]
  - Cerebellar ataxia [Recovered/Resolved]
